FAERS Safety Report 18249290 (Version 1)
Quarter: 2020Q3

REPORT INFORMATION
  Report Type: Spontaneous
  Country: FR (occurrence: FR)
  Receive Date: 20200909
  Receipt Date: 20200909
  Transmission Date: 20201103
  Serious: Yes (Hospitalization, Other)
  Sender: FDA-Public Use
  Company Number: FR-ALLERGAN-2034008US

PATIENT
  Sex: Male
  Weight: 88 kg

DRUGS (2)
  1. CEFTAZIDIME;AVIBACTAM ? BP [Suspect]
     Active Substance: AVIBACTAM SODIUM\CEFTAZIDIME
     Indication: SEPSIS
     Dosage: 6 G, QD
     Route: 041
     Dates: start: 20200709, end: 20200712
  2. AZACTAM [Suspect]
     Active Substance: AZTREONAM
     Indication: SEPSIS
     Dosage: 6 G, QD
     Route: 041
     Dates: start: 20200709, end: 20200712

REACTIONS (2)
  - Thrombocytopenia [Recovering/Resolving]
  - Off label use [Unknown]

NARRATIVE: CASE EVENT DATE: 20200711
